FAERS Safety Report 13598358 (Version 1)
Quarter: 2017Q2

REPORT INFORMATION
  Report Type: Spontaneous
  Country: CA (occurrence: CA)
  Receive Date: 20170531
  Receipt Date: 20170531
  Transmission Date: 20170830
  Serious: Yes (Hospitalization)
  Sender: FDA-Public Use
  Company Number: CA-FRESENIUS MEDICAL CARE RENAL THERAPIES GROUP-FMC-1705-000585

PATIENT

DRUGS (1)
  1. 0.9% SODIUM CHLORIDE INJECTION [Suspect]
     Active Substance: SODIUM CHLORIDE
     Indication: END STAGE RENAL DISEASE

REACTIONS (1)
  - Sepsis [Recovering/Resolving]
